FAERS Safety Report 8197845-1 (Version None)
Quarter: 2012Q1

REPORT INFORMATION
  Report Type: 
  Country: None (occurrence: None)
  Receive Date: 20120309
  Receipt Date: 20120306
  Transmission Date: 20120608
  Serious: Yes (Hospitalization, Disabling)
  Sender: FDA-Public Use
  Company Number: US-BAYER-2011-037977

PATIENT
  Age: 37 Year
  Sex: Female
  Weight: 68 kg

DRUGS (23)
  1. HERBAL PREPARATION [Concomitant]
  2. GABAPENTIN [Concomitant]
     Indication: AFFECTIVE DISORDER
  3. SLEEP AID [Concomitant]
     Dosage: UNK UNK, QD
  4. FISH OIL [Concomitant]
     Dosage: UNK UNK, QD
  5. GABAPENTIN [Concomitant]
     Indication: ANXIETY
     Dosage: 300 MG, UNK
     Dates: start: 20071001, end: 20110101
  6. YAZ [Suspect]
     Indication: PREMENSTRUAL SYNDROME
     Dosage: UNK
     Dates: start: 20080214, end: 20090516
  7. VALARIUM [Concomitant]
     Dosage: UNK
     Dates: start: 20090517
  8. HUMULUS LUPULUS EXTRACT [Concomitant]
     Dosage: UNK
     Dates: start: 20090517
  9. PRISTIQ [Concomitant]
     Indication: DEPRESSION
     Dosage: 200 MG, QD
     Dates: start: 20081027
  10. LEVOTHYROXINE SODIUM [Concomitant]
     Indication: HYPOTHYROIDISM
     Dosage: 100 MCG/24HR, QD
     Dates: start: 20050701, end: 20110401
  11. TAMIFLU [Concomitant]
     Dosage: 75 MG, UNK
     Dates: start: 20090416
  12. PASSIFLORA INCARNATA [Concomitant]
     Dosage: UNK
     Dates: start: 20090517
  13. LEXAPRO [Concomitant]
     Indication: DEPRESSION
     Dosage: UNK
     Dates: start: 20020101
  14. L-THEAMINE EXTRAC [Concomitant]
  15. MELISSA OFFICINALIS [Concomitant]
     Dosage: UNK
     Dates: start: 20090517
  16. CENTRALLY ACTING SYMPATHOMIMETICS [Concomitant]
     Indication: DISTURBANCE IN ATTENTION
     Dosage: UNK
     Dates: start: 20071001
  17. NEURONTIN [Concomitant]
     Dosage: UNK
     Dates: start: 20090516
  18. MULTI-VITAMIN [Concomitant]
     Dosage: UNK UNK, QD
  19. HERBAL PREPARATION [Concomitant]
     Dosage: UNK
     Dates: start: 20090517
  20. HERBAL PREPARATION [Concomitant]
     Dosage: UNK
     Dates: start: 20090517
  21. CLONAZEPAM [Concomitant]
     Indication: AFFECTIVE DISORDER
  22. MAGNESIUM GLUCONATE [Concomitant]
     Dosage: UNK UNK, QD
  23. CLONAZEPAM [Concomitant]
     Indication: ANXIETY
     Dosage: 1 MG, QD
     Dates: start: 20070901, end: 20110101

REACTIONS (10)
  - FEAR [None]
  - DEEP VEIN THROMBOSIS [None]
  - PAIN IN EXTREMITY [None]
  - ABASIA [None]
  - DYSPNOEA [None]
  - PULMONARY EMBOLISM [None]
  - PAIN [None]
  - FATIGUE [None]
  - EMOTIONAL DISTRESS [None]
  - ANXIETY [None]
